FAERS Safety Report 24164792 (Version 2)
Quarter: 2024Q3

REPORT INFORMATION
  Report Type: Report from Study
  Country: US (occurrence: US)
  Receive Date: 20240801
  Receipt Date: 20240808
  Transmission Date: 20241016
  Serious: Yes (Death)
  Sender: BIOGEN
  Company Number: US-BIOGEN-2024BI01275835

PATIENT
  Age: 61 Year
  Sex: Female

DRUGS (1)
  1. TYSABRI [Suspect]
     Active Substance: NATALIZUMAB
     Indication: Multiple sclerosis
     Route: 050
     Dates: start: 20120801, end: 20230814

REACTIONS (1)
  - Death [Fatal]

NARRATIVE: CASE EVENT DATE: 20231101
